FAERS Safety Report 23113036 (Version 2)
Quarter: 2025Q2

REPORT INFORMATION
  Report Type: Spontaneous
  Country: NL (occurrence: NL)
  Receive Date: 20231027
  Receipt Date: 20250503
  Transmission Date: 20250716
  Serious: Yes (Hospitalization, Other)
  Sender: AUROBINDO
  Company Number: NL-SAMSUNG BIOEPIS-SB-2023-27466

PATIENT
  Age: 49 Year
  Sex: Female

DRUGS (2)
  1. LEFLUNOMIDE [Suspect]
     Active Substance: LEFLUNOMIDE
     Indication: Rheumatoid arthritis
     Route: 065
  2. ADALIMUMAB [Suspect]
     Active Substance: ADALIMUMAB
     Indication: Rheumatoid arthritis
     Route: 065

REACTIONS (5)
  - Pulmonary mass [Recovering/Resolving]
  - Rheumatoid arthritis [Not Recovered/Not Resolved]
  - Necrobiosis [Recovering/Resolving]
  - Sinusitis [Unknown]
  - Urinary tract infection [Unknown]
